FAERS Safety Report 19769224 (Version 1)
Quarter: 2021Q3

REPORT INFORMATION
  Report Type: Spontaneous
  Country: DE (occurrence: DE)
  Receive Date: 20210831
  Receipt Date: 20210831
  Transmission Date: 20211014
  Serious: Yes (Death, Hospitalization)
  Sender: FDA-Public Use
  Company Number: DE-ACCORD-236871

PATIENT
  Age: 67 Year
  Sex: Female
  Weight: 68 kg

DRUGS (14)
  1. METAMIZOLE [Concomitant]
     Active Substance: METAMIZOLE
     Dosage: 40 GTT, 1?1?1?1
  2. TOLVAPTAN [Concomitant]
     Active Substance: TOLVAPTAN
     Dosage: 7.5 MG, 1?0?0?0
  3. LEVOTHYROXINE. [Concomitant]
     Active Substance: LEVOTHYROXINE
     Dosage: 125 MICROGRAM, 1?0?0?0
  4. DOMPERIDONE [Concomitant]
     Active Substance: DOMPERIDONE
     Dosage: 10 MG, 1?0?1?0
  5. POTASSIUM [Concomitant]
     Active Substance: POTASSIUM
     Dosage: 1?0?1?0
  6. ZOLEDRONIC ACID [Suspect]
     Active Substance: ZOLEDRONIC ACID
     Indication: PRODUCT USED FOR UNKNOWN INDICATION
     Dosage: ACCORDING TO THE SCHEME
  7. SPIRONOLACTONE. [Concomitant]
     Active Substance: SPIRONOLACTONE
     Dosage: 25 MG, 1?0?0?0
  8. PREGABALIN. [Concomitant]
     Active Substance: PREGABALIN
     Dosage: 50 MG, 1?0?1?0
  9. AMITRIPTYLINE [Concomitant]
     Active Substance: AMITRIPTYLINE
     Dosage: 50 MG, 0?0?0?1
  10. POTASSIUM CITRATE. [Concomitant]
     Active Substance: POTASSIUM CITRATE
     Dosage: 1?1?1?0
  11. CANDESARTAN. [Concomitant]
     Active Substance: CANDESARTAN
     Dosage: 4 MG, 1?0?0?0
  12. PANTOPRAZOLE [Concomitant]
     Active Substance: PANTOPRAZOLE
     Dosage: 40 MG, 1?0?0?0
  13. BISACODYL. [Concomitant]
     Active Substance: BISACODYL
     Dosage: 10 GTT, 1?0?0?0
  14. MORPHINE [Concomitant]
     Active Substance: MORPHINE
     Dosage: 5 MG, REQUIREMENT

REACTIONS (7)
  - Hypertension [Unknown]
  - Musculoskeletal pain [Unknown]
  - Anaemia [Unknown]
  - Pain [Unknown]
  - Condition aggravated [Unknown]
  - General physical health deterioration [Unknown]
  - Night sweats [Unknown]
